FAERS Safety Report 9867104 (Version 1)
Quarter: 2014Q1

REPORT INFORMATION
  Report Type: Spontaneous
  Country: US (occurrence: None)
  Receive Date: 20140203
  Receipt Date: 20140203
  Transmission Date: 20141002
  Serious: Yes (Other)
  Sender: FDA-Public Use
  Company Number: None

PATIENT
  Age: 60 Year
  Sex: Female
  Weight: 78.47 kg

DRUGS (6)
  1. QSYMIA [Suspect]
     Indication: WEIGHT DECREASED
     Dosage: 3.75-23 MG?1 PILL?ONCE A DAY?BY MOUTH
     Route: 048
     Dates: start: 20140124, end: 20140125
  2. PROPRANOLOL [Concomitant]
  3. METFORMIN [Concomitant]
  4. LOVAZA [Concomitant]
  5. SPIRONALADAITINE [Concomitant]
  6. PANTOPRAZOLE [Concomitant]

REACTIONS (4)
  - Tinnitus [None]
  - Deafness unilateral [None]
  - Headache [None]
  - Memory impairment [None]
